FAERS Safety Report 6261794-6 (Version None)
Quarter: 2009Q3

REPORT INFORMATION
  Report Type: 
  Country: None (occurrence: None)
  Receive Date: 20090709
  Receipt Date: 20090701
  Transmission Date: 20100115
  Serious: Yes (Other)
  Sender: FDA-Public Use
  Company Number: JP-PFIZER INC-2009235497

PATIENT

DRUGS (1)
  1. LIPITOR [Suspect]
     Dosage: 10 MG, 1X/DAY
     Route: 048

REACTIONS (2)
  - MUSCLE ATROPHY [None]
  - PAIN IN EXTREMITY [None]
